FAERS Safety Report 25145663 (Version 1)
Quarter: 2025Q2

REPORT INFORMATION
  Report Type: Spontaneous
  Country: FR (occurrence: None)
  Receive Date: 20250401
  Receipt Date: 20250401
  Transmission Date: 20250716
  Serious: Yes (Life-Threatening, Other)
  Sender: ETHYPHARM
  Company Number: None

PATIENT
  Age: 47 Year
  Sex: Female
  Weight: 49.5 kg

DRUGS (5)
  1. TRAMADOL HYDROCHLORIDE [Suspect]
     Active Substance: TRAMADOL HYDROCHLORIDE
  2. LYRICA [Suspect]
     Active Substance: PREGABALIN
  3. BUPRENORPHINE [Suspect]
     Active Substance: BUPRENORPHINE
  4. COCAINE [Suspect]
     Active Substance: COCAINE
  5. OXAZEPAM [Suspect]
     Active Substance: OXAZEPAM

REACTIONS (4)
  - Substance abuse [Unknown]
  - Coma [Recovered/Resolved]
  - Hypotension [Recovered/Resolved]
  - Miosis [Recovered/Resolved]

NARRATIVE: CASE EVENT DATE: 20241124
